FAERS Safety Report 8556078-7 (Version None)
Quarter: 2012Q3

REPORT INFORMATION
  Report Type: 
  Country: None (occurrence: None)
  Receive Date: 20120801
  Receipt Date: 20120719
  Transmission Date: 20120928
  Serious: No
  Sender: FDA-Public Use
  Company Number: US-JNJFOC-20120711307

PATIENT
  Sex: Female
  Weight: 68.04 kg

DRUGS (5)
  1. CLONAZEPAM [Concomitant]
     Indication: MUSCLE SPASMS
     Route: 048
     Dates: start: 20120301
  2. NUCYNTA ER [Concomitant]
     Indication: BREAKTHROUGH PAIN
     Route: 048
     Dates: start: 20120301
  3. FENTANYL-100 [Suspect]
     Indication: NECK PAIN
     Route: 062
     Dates: start: 20120501
  4. FENTANYL-100 [Suspect]
     Indication: PAIN
     Route: 062
     Dates: start: 20120501
  5. CLONAZEPAM [Concomitant]
     Indication: PAIN
     Route: 048
     Dates: start: 20120301

REACTIONS (3)
  - DRUG EFFECT DECREASED [None]
  - PRODUCT QUALITY ISSUE [None]
  - WRONG TECHNIQUE IN DRUG USAGE PROCESS [None]
